FAERS Safety Report 5322572-5 (Version None)
Quarter: 2007Q2

REPORT INFORMATION
  Report Type: 
  Country: None (occurrence: None)
  Receive Date: 20070511
  Receipt Date: 20070327
  Transmission Date: 20071010
  Serious: Yes (Other)
  Sender: FDA-Public Use
  Company Number: DE-ROCHE-486180

PATIENT
  Age: 48 Year
  Sex: Male

DRUGS (4)
  1. VALCYTE [Suspect]
     Dosage: INDICATION REPORTED AS KIDNEY TRANSPLANTATION (NTX), CMV REACTIVATION.
     Route: 048
     Dates: start: 20061214, end: 20070209
  2. CELLCEPT [Suspect]
     Dosage: DOSING FREQUENCY: 2X. INDICATION REPORTED AS NTX, CMV IMMUNOSUPPRESSION.
     Route: 048
     Dates: start: 20070131, end: 20070305
  3. PROGRAF [Suspect]
     Indication: IMMUNOSUPPRESSION
     Dosage: FREQUENCY: 2X.  INDICATION REPORTED AS NTX, CMV IMMUNOSUPPRESSION.
     Route: 048
     Dates: start: 20070131, end: 20070305
  4. DECORTIN H [Suspect]
     Indication: IMMUNOSUPPRESSION
     Dosage: FREQUENCY: 1X.  INDICATION REPORTED AS NTX, CMV IMMUNOSUPPRESSION.
     Route: 048
     Dates: start: 20070131, end: 20070305

REACTIONS (2)
  - NEUTROPENIA [None]
  - PNEUMOCYSTIS JIROVECI PNEUMONIA [None]
